FAERS Safety Report 4460057-9 (Version None)
Quarter: 2004Q3

REPORT INFORMATION
  Report Type: 
  Country: None (occurrence: None)
  Receive Date: 20040928
  Receipt Date: 20030128
  Transmission Date: 20050211
  Serious: No
  Sender: FDA-Public Use
  Company Number: US-GLAXOSMITHKLINE-A0428859A

PATIENT
  Age: 44 Year
  Sex: Female
  Weight: 75.5 kg

DRUGS (2)
  1. SEREVENT [Suspect]
     Indication: ASTHMA
     Route: 055
     Dates: start: 20030601, end: 20030901
  2. ADVAIR DISKUS 100/50 [Suspect]
     Indication: ILL-DEFINED DISORDER
     Route: 055

REACTIONS (6)
  - ASTHMA [None]
  - DIZZINESS [None]
  - DRUG INEFFECTIVE [None]
  - EYE IRRITATION [None]
  - EYE SWELLING [None]
  - PERIORBITAL OEDEMA [None]
